FAERS Safety Report 9456960 (Version 2)
Quarter: 2013Q3

REPORT INFORMATION
  Report Type: Spontaneous
  Country: US (occurrence: US)
  Receive Date: 20130814
  Receipt Date: 20130904
  Transmission Date: 20140515
  Serious: Yes (Other)
  Sender: FDA-Public Use
  Company Number: US-AMGEN-USASP2013056601

PATIENT
  Age: 52 Year
  Sex: Male
  Weight: 96.15 kg

DRUGS (11)
  1. EPOGEN [Suspect]
     Indication: ANAEMIA
     Dosage: 13200 UNIT, QWK
     Route: 065
     Dates: start: 20130729
  2. EXFORGE [Concomitant]
     Dosage: 5-320 MG PER TABLET, QD
     Route: 048
  3. PROGRAF [Concomitant]
     Dosage: 1 MG, 2 TIMES DAILY
     Route: 048
  4. CELLCEPT                           /01275102/ [Concomitant]
     Dosage: 500 MG, 2 TIME DAILY
     Route: 048
  5. DELTASONE                          /00044701/ [Concomitant]
     Dosage: 5 MG, QD
     Route: 048
  6. METOPROLOL SUCCINATE [Concomitant]
     Dosage: 25 MG, QD
     Route: 048
  7. PRAVACHOL [Concomitant]
     Dosage: 20 MG, QD
     Route: 048
  8. PEPCID                             /00706001/ [Concomitant]
     Dosage: 20 MG, QD
     Route: 048
  9. SULFAMETHOXAZOLE AND TRIMETHOPRIM [Concomitant]
     Dosage: UNK UNK, QD
     Route: 048
  10. PERCOCET                           /00867901/ [Concomitant]
     Dosage: 10-325 MG, 1 TABLET EVERY 4 HOURS AS NEEDED
     Route: 048
  11. VENTOLIN                           /00139501/ [Concomitant]
     Dosage: 2 PUFFS INTO THE LUNGS EVERY 4 HOURS AS NEEDED

REACTIONS (22)
  - Normochromic normocytic anaemia [Unknown]
  - Diabetes mellitus [Unknown]
  - Basal cell carcinoma [Unknown]
  - Renal failure chronic [Unknown]
  - Knee arthroplasty [Unknown]
  - Leg amputation [Unknown]
  - Obstructive airways disorder [Unknown]
  - Transplant failure [Unknown]
  - Skin cancer [Unknown]
  - Fatigue [Unknown]
  - Visual impairment [Unknown]
  - Vision blurred [Unknown]
  - Contusion [Unknown]
  - Epistaxis [Unknown]
  - Drug resistance [Unknown]
  - Dental caries [Unknown]
  - Lung disorder [Unknown]
  - Skin lesion [Unknown]
  - Drug ineffective [Unknown]
  - Oedema peripheral [Unknown]
  - Hypertension [Unknown]
  - Oedema [Unknown]
